FAERS Safety Report 4746052-0 (Version None)
Quarter: 2005Q3

REPORT INFORMATION
  Report Type: 
  Country: None (occurrence: None)
  Receive Date: 20050816
  Receipt Date: 20050805
  Transmission Date: 20060218
  Serious: Yes (Other)
  Sender: FDA-Public Use
  Company Number: US-JNJFOC-20050703136

PATIENT
  Sex: Male

DRUGS (5)
  1. CONCERTA [Suspect]
     Indication: BIPOLAR DISORDER
     Route: 048
  2. CONCERTA [Suspect]
     Route: 048
  3. CLONIDINE [Interacting]
     Indication: BIPOLAR DISORDER
  4. CLONIDINE [Interacting]
  5. IMIPRAMINE [Interacting]
     Indication: ENURESIS

REACTIONS (17)
  - ABDOMINAL PAIN UPPER [None]
  - AGGRESSION [None]
  - ANGER [None]
  - CHEST PAIN [None]
  - DIZZINESS [None]
  - DRUG INTERACTION [None]
  - FATIGUE [None]
  - HEADACHE [None]
  - HEART RATE INCREASED [None]
  - HOMICIDAL IDEATION [None]
  - HOT FLUSH [None]
  - INSOMNIA [None]
  - LOSS OF CONSCIOUSNESS [None]
  - MUSCLE SPASMS [None]
  - NAUSEA [None]
  - PHARYNGOLARYNGEAL PAIN [None]
  - VOMITING [None]
